FAERS Safety Report 23323482 (Version 1)
Quarter: 2023Q4

REPORT INFORMATION
  Report Type: Other
  Country: US (occurrence: None)
  Receive Date: 20231220
  Receipt Date: 20231220
  Transmission Date: 20240110
  Serious: No
  Sender: FDA-Public Use
  Company Number: US-ROCHE-3377405

PATIENT
  Age: 63 Year
  Sex: Male

DRUGS (3)
  1. RITUXIMAB [Suspect]
     Active Substance: RITUXIMAB
     Indication: Factor VIII inhibition
     Dosage: FIRST 2 WEEKLY DOSES DURING HIS HOSPITALIZATION AND THEN THE REMAINING 2 AS AN OUTPATIENT, FOR A TOT
     Route: 042
  2. METHYLPREDNISOLONE [Suspect]
     Active Substance: METHYLPREDNISOLONE
     Indication: Factor VIII inhibition
     Dosage: 500 MG/DAY FOR 3 DAYS
     Route: 065
  3. PREDNISONE [Suspect]
     Active Substance: PREDNISONE
     Indication: Factor VIII inhibition
     Dosage: TAPERED AFTER 2 WEEKS.
     Route: 048

REACTIONS (1)
  - Abscess [Unknown]
